APPROVED DRUG PRODUCT: FLUOCINONIDE
Active Ingredient: FLUOCINONIDE
Strength: 0.05%
Dosage Form/Route: SOLUTION;TOPICAL
Application: A216389 | Product #001 | TE Code: AT
Applicant: QUAGEN PHARMACEUTICALS LLC
Approved: Feb 26, 2025 | RLD: No | RS: No | Type: RX